FAERS Safety Report 21495228 (Version 2)
Quarter: 2022Q4

REPORT INFORMATION
  Report Type: Report from Study
  Country: MX (occurrence: MX)
  Receive Date: 20221022
  Receipt Date: 20221026
  Transmission Date: 20230112
  Serious: Yes (Hospitalization)
  Sender: FDA-Public Use
  Company Number: MX-ABBVIE-4170546

PATIENT
  Age: 51 Year
  Sex: Male
  Weight: 76 kg

DRUGS (1)
  1. HUMIRA [Suspect]
     Active Substance: ADALIMUMAB
     Indication: Uveitis
     Dosage: STRENGTH: 40 MILLIGRAM.
     Route: 058
     Dates: start: 20110613, end: 20220928

REACTIONS (4)
  - Lumbar vertebral fracture [Recovering/Resolving]
  - Fall [Recovering/Resolving]
  - Spinal fracture [Recovering/Resolving]
  - Body height decreased [Not Recovered/Not Resolved]

NARRATIVE: CASE EVENT DATE: 20221017
